FAERS Safety Report 4882080-2 (Version None)
Quarter: 2006Q1

REPORT INFORMATION
  Report Type: 
  Country: None (occurrence: None)
  Receive Date: 20060117
  Receipt Date: 20041129
  Transmission Date: 20060701
  Serious: Yes (Disabling)
  Sender: FDA-Public Use
  Company Number: US-MERCK-0411USA04246

PATIENT
  Age: 43 Year
  Sex: Female
  Weight: 77 kg

DRUGS (6)
  1. VIOXX [Suspect]
     Indication: ARTHRALGIA
     Route: 048
     Dates: start: 20030101, end: 20040901
  2. DARVOCET-N 50 [Concomitant]
     Route: 048
     Dates: start: 20040716, end: 20040901
  3. ROBAXIN [Concomitant]
     Route: 048
  4. MOTRIN [Concomitant]
     Route: 065
  5. ELAVIL [Concomitant]
     Route: 048
     Dates: start: 20040623, end: 20040901
  6. ULTRAM [Concomitant]
     Route: 065
     Dates: start: 20040812

REACTIONS (12)
  - CHEST DISCOMFORT [None]
  - DYSPEPSIA [None]
  - DYSPNOEA [None]
  - FATIGUE [None]
  - HYPERCHOLESTEROLAEMIA [None]
  - HYPOAESTHESIA [None]
  - JOINT SPRAIN [None]
  - MYOCARDIAL INFARCTION [None]
  - NECK INJURY [None]
  - SLEEP DISORDER [None]
  - SNORING [None]
  - SOMNOLENCE [None]
